FAERS Safety Report 4932586-2 (Version None)
Quarter: 2006Q1

REPORT INFORMATION
  Report Type: 
  Country: None (occurrence: None)
  Receive Date: 20060301
  Receipt Date: 20060221
  Transmission Date: 20060701
  Serious: Yes (Other)
  Sender: FDA-Public Use
  Company Number: HQWYE935323FEB06

PATIENT
  Age: 64 Year
  Sex: Male

DRUGS (14)
  1. CORDARONE [Suspect]
     Indication: ATRIAL FIBRILLATION
     Dosage: SEE IMAGE
     Route: 048
     Dates: start: 20051227, end: 20060101
  2. CORDARONE [Suspect]
     Indication: ATRIAL FIBRILLATION
     Dosage: SEE IMAGE
     Route: 048
     Dates: start: 20060101
  3. ASPIRIN [Suspect]
     Dosage: 0.5 DOSAGE FORM 1X PER 1 DAY
     Route: 048
  4. ATACAND [Suspect]
     Dosage: 32 MG 1X PER 1 DAY
     Route: 048
  5. CARVEDILOL [Suspect]
     Dosage: 50 MG 2 X PER 1 DAY
     Route: 048
  6. CYNT (MOXONIDINE, ) [Suspect]
     Dosage: 0.4 MG 2X PER 1 DAY
     Route: 048
  7. GLUCOPHAGE [Suspect]
     Dosage: 850 MG 2X PER 1 DAY
     Route: 048
  8. INEGY (EZETIMIBE/SIMVASTATIN, ) [Suspect]
     Dosage: 1 DOSAGE FORM 1X PER 1 DAY
     Route: 048
  9. INSULIN HUMAN (INSULIN HUMAN, ) [Suspect]
     Dosage: 22 UNIT 1X PER 1 DAY
     Route: 042
  10. INSULIN LISPRO (INSULIN, LISPRO, ) [Suspect]
     Dosage: 36 UNIT 1X PER 1 DAY
     Route: 042
  11. MANIDIPINE (MANIDIPINE, ) [Suspect]
     Dosage: 0.5 DOSAGE FORM 1X PER 1 DAY
     Route: 048
  12. INDAPAMIDE [Suspect]
     Dosage: 1.5 MG 1X PER 1 DAY
     Route: 048
  13. PLAVIX [Suspect]
     Dosage: 75 MG 1X PER 1 DAY
     Route: 048
  14. RAMIPRIL [Suspect]
     Dosage: 10 MG 1X PER 1 DAY
     Route: 048

REACTIONS (4)
  - ATRIAL FIBRILLATION [None]
  - DISEASE RECURRENCE [None]
  - DRUG INTERACTION [None]
  - DRUG LEVEL DECREASED [None]
